FAERS Safety Report 9046307 (Version 1)
Quarter: 2013Q1

REPORT INFORMATION
  Report Type: Spontaneous
  Country: US (occurrence: None)
  Receive Date: 20130128
  Receipt Date: 20130128
  Transmission Date: 20140127
  Serious: No
  Sender: FDA-Public Use
  Company Number: None

PATIENT
  Age: 49 Year
  Sex: Male
  Weight: 123.2 kg

DRUGS (1)
  1. NITROGLYCERIN [Suspect]
     Dates: start: 20121109, end: 20121128

REACTIONS (1)
  - Headache [None]
